FAERS Safety Report 9494413 (Version 1)
Quarter: 2013Q3

REPORT INFORMATION
  Report Type: Spontaneous
  Country: US (occurrence: US)
  Receive Date: 20130903
  Receipt Date: 20130903
  Transmission Date: 20140515
  Serious: Yes (Hospitalization, Other)
  Sender: FDA-Public Use
  Company Number: US-ELI_LILLY_AND_COMPANY-US201308007288

PATIENT
  Sex: Male

DRUGS (3)
  1. ADCIRCA [Suspect]
     Indication: PULMONARY ARTERIAL HYPERTENSION
     Dosage: 20 MG, QD
     Route: 048
  2. ADCIRCA [Suspect]
     Dosage: 40 MG, EACH MORNING
     Route: 048
  3. ADCIRCA [Suspect]
     Dosage: 20 MG, EACH EVENING
     Route: 048

REACTIONS (3)
  - Pericardial effusion [Unknown]
  - Dyspnoea [Unknown]
  - Prescribed overdose [Not Recovered/Not Resolved]
